FAERS Safety Report 4470878-4 (Version None)
Quarter: 2004Q4

REPORT INFORMATION
  Report Type: 
  Country: None (occurrence: None)
  Receive Date: 20041011
  Receipt Date: 20040927
  Transmission Date: 20050328
  Serious: Yes (Death)
  Sender: FDA-Public Use
  Company Number: JP-JNJFOC-20040102853

PATIENT
  Sex: Female

DRUGS (3)
  1. DUROTEP [Suspect]
     Route: 062
     Dates: start: 20031215, end: 20031225
  2. DUROTEP [Suspect]
     Route: 062
     Dates: start: 20031215, end: 20031225
  3. DUROTEP [Suspect]
     Indication: CANCER PAIN
     Route: 062
     Dates: start: 20031215, end: 20031225

REACTIONS (2)
  - DEPRESSED LEVEL OF CONSCIOUSNESS [None]
  - MALIGNANT NEOPLASM PROGRESSION [None]
